FAERS Safety Report 5018738-4 (Version None)
Quarter: 2006Q2

REPORT INFORMATION
  Report Type: 
  Country: None (occurrence: None)
  Receive Date: 20060606
  Receipt Date: 20060525
  Transmission Date: 20061013
  Serious: Yes (Hospitalization, Other)
  Sender: FDA-Public Use
  Company Number: US-JNJFOC-20051005780

PATIENT
  Sex: Female
  Weight: 115.21 kg

DRUGS (14)
  1. REMICADE [Suspect]
     Route: 042
  2. REMICADE [Suspect]
     Route: 042
  3. REMICADE [Suspect]
     Indication: RHEUMATOID ARTHRITIS
     Route: 042
  4. PREDNISONE [Concomitant]
     Indication: RHEUMATOID ARTHRITIS
  5. REMERON [Concomitant]
  6. VICODIN [Concomitant]
  7. VICODIN [Concomitant]
     Indication: PAIN
  8. METHOTREXATE [Concomitant]
     Indication: RHEUMATOID ARTHRITIS
  9. FOLIC ACID [Concomitant]
     Indication: RHEUMATOID ARTHRITIS
  10. NEURONTIN [Concomitant]
     Indication: PAIN
  11. ZIMBALTA [Concomitant]
  12. TOPAMAX [Concomitant]
     Indication: CONVULSION
  13. ADVIL [Concomitant]
  14. SYNTHROID [Concomitant]

REACTIONS (7)
  - ANKLE FRACTURE [None]
  - CONDITION AGGRAVATED [None]
  - CONVULSION [None]
  - EPILEPSY [None]
  - FALL [None]
  - LOWER LIMB FRACTURE [None]
  - RHEUMATOID ARTHRITIS [None]
